FAERS Safety Report 9736673 (Version 2)
Quarter: 2013Q4

REPORT INFORMATION
  Report Type: Spontaneous
  Country: US (occurrence: US)
  Receive Date: 20131206
  Receipt Date: 20131206
  Transmission Date: 20140711
  Serious: No
  Sender: FDA-Public Use
  Company Number: US-GILEAD-2009-0023358

PATIENT
  Age: 73 Year
  Sex: Female
  Weight: 74.84 kg

DRUGS (19)
  1. LETAIRIS [Suspect]
     Indication: PULMONARY ARTERIAL HYPERTENSION
     Route: 048
     Dates: start: 20090713, end: 20090723
  2. SIMVASTATIN [Concomitant]
  3. COUMADIN [Concomitant]
  4. LASIX [Concomitant]
  5. RYTHMOL [Concomitant]
  6. SYNTHROID [Concomitant]
  7. AMLODIPINE [Concomitant]
  8. FERROUS SULFATE [Concomitant]
  9. METFORMIN [Concomitant]
  10. DIGOXIN [Concomitant]
  11. ACTONEL [Concomitant]
  12. NEXIUM [Concomitant]
  13. POTASSIUM CHLORIDE [Concomitant]
  14. BYSTOLIC [Concomitant]
  15. LEXAPRO [Concomitant]
  16. FISH OIL [Concomitant]
  17. VITAMIN D [Concomitant]
  18. DUETACT [Concomitant]
  19. CALCIUM/MAGNESIUM/ZINC [Concomitant]

REACTIONS (6)
  - Cardiac failure [Recovered/Resolved]
  - Blood pressure decreased [Recovering/Resolving]
  - Unevaluable event [Recovering/Resolving]
  - Malaise [Recovering/Resolving]
  - Dyspnoea [Recovering/Resolving]
  - Oedema peripheral [Recovering/Resolving]
